FAERS Safety Report 17437295 (Version 5)
Quarter: 2020Q4

REPORT INFORMATION
  Report Type: Spontaneous
  Country: US (occurrence: US)
  Receive Date: 20200219
  Receipt Date: 20201210
  Transmission Date: 20210113
  Serious: Yes (Death, Life-Threatening)
  Sender: FDA-Public Use
  Company Number: US-AMERICAN REGENT INC-2020000372

PATIENT
  Age: 42 Year
  Sex: Male
  Weight: 68.6 kg

DRUGS (22)
  1. VENOFER [Suspect]
     Active Substance: IRON SUCROSE
     Dosage: 100 MILLIGRAM, SINGLE (NO DILUTION)
     Dates: start: 20200205, end: 20200205
  2. MIRCERA [Suspect]
     Active Substance: METHOXY POLYETHYLENE GLYCOL-EPOETIN BETA
     Dosage: 100 MCG, EVERY 2 WEEKS (FOR ONE DOSE)
     Dates: start: 20200205, end: 20200205
  3. PANTOPRAZOLE [Concomitant]
     Active Substance: PANTOPRAZOLE
     Indication: PRODUCT USED FOR UNKNOWN INDICATION
     Dosage: TAKE 1 TABLET ONCE A DAY
     Route: 048
  4. VENOFER [Suspect]
     Active Substance: IRON SUCROSE
     Dosage: 50 MILLIGRAM, SINGLE
     Dates: start: 20200131, end: 20200131
  5. PHOSLYRA [Concomitant]
     Active Substance: CALCIUM ACETATE
     Indication: PRODUCT USED FOR UNKNOWN INDICATION
     Dosage: TAKE 10 ML THREE TIMES A DAY WITH MEALS
     Route: 048
  6. ONDANSETRON HCL [Concomitant]
     Active Substance: ONDANSETRON HYDROCHLORIDE
     Indication: PRODUCT USED FOR UNKNOWN INDICATION
     Dosage: TAKE 1 TABLET EVERY 8 HOURS AS NEEDED
     Route: 048
  7. VENOFER [Suspect]
     Active Substance: IRON SUCROSE
     Indication: IRON DEFICIENCY ANAEMIA
     Dosage: 100 MILLIGRAM, SINGLE (NO DILUTION)
     Dates: start: 20191204, end: 20191204
  8. RENVELA [Concomitant]
     Active Substance: SEVELAMER CARBONATE
     Indication: PRODUCT USED FOR UNKNOWN INDICATION
     Dosage: TAKE 2 TABLETS THREE TIMES A DAY WITH MEALS
     Route: 048
  9. VENOFER [Suspect]
     Active Substance: IRON SUCROSE
     Dosage: 100 MILLIGRAM, SINGLE (NO DILUTION)
     Dates: start: 20191211, end: 20191211
  10. VENOFER [Suspect]
     Active Substance: IRON SUCROSE
     Dosage: 100 MILLIGRAM, SINGLE (NO DILUTION)
     Dates: start: 20191226, end: 20191226
  11. VENOFER [Suspect]
     Active Substance: IRON SUCROSE
     Dosage: 100 MILLIGRAM, SINGLE (NO DILUTION)
     Dates: start: 20191209, end: 20191209
  12. VENOFER [Suspect]
     Active Substance: IRON SUCROSE
     Dosage: 100 MILLIGRAM, SINGLE (NO DILUTION)
     Dates: start: 20191218, end: 20191218
  13. VENOFER [Suspect]
     Active Substance: IRON SUCROSE
     Dosage: 100 MILLIGRAM, SINGLE (NO DILUTION)
     Dates: start: 20191229, end: 20191229
  14. AMLODIPINE [Concomitant]
     Active Substance: AMLODIPINE BESYLATE
     Indication: PRODUCT USED FOR UNKNOWN INDICATION
     Dosage: TAKE 1 TABLET ONCE A DAY
     Route: 048
  15. DOXAZOSIN [Concomitant]
     Active Substance: DOXAZOSIN MESYLATE
     Indication: PRODUCT USED FOR UNKNOWN INDICATION
     Dosage: TAKE 1 TABLET ONCE A DAY
     Route: 048
  16. ELIQUIS [Concomitant]
     Active Substance: APIXABAN
     Indication: PRODUCT USED FOR UNKNOWN INDICATION
     Dosage: TAKE 1 TABLET TWICE A DAY
     Route: 048
  17. VENOFER [Suspect]
     Active Substance: IRON SUCROSE
     Dosage: 100 MILLIGRAM, SINGLE (NO DILUTION)
     Dates: start: 20191216, end: 20191216
  18. VENOFER [Suspect]
     Active Substance: IRON SUCROSE
     Dosage: 100 MILLIGRAM, SINGLE (NO DILUTION)
     Dates: start: 20191231, end: 20191231
  19. MIRCERA [Suspect]
     Active Substance: METHOXY POLYETHYLENE GLYCOL-EPOETIN BETA
     Indication: NEPHROGENIC ANAEMIA
     Dosage: 100 MCG, EVERY 2 WEEKS
     Dates: start: 20191224
  20. VITAMIN D2 [Concomitant]
     Active Substance: ERGOCALCIFEROL
     Indication: PRODUCT USED FOR UNKNOWN INDICATION
     Dosage: TAKE 1 CAPSULE ONCE A WEEK (SUNDAY) X8 WEEKS, THEN PLAN MONTHLY
     Route: 048
  21. LANTUS [Concomitant]
     Active Substance: INSULIN GLARGINE
     Indication: PRODUCT USED FOR UNKNOWN INDICATION
     Dosage: SOLOSTAR; INJECT 10 UNITS TWICE A DAY
     Route: 058
  22. VENOFER [Suspect]
     Active Substance: IRON SUCROSE
     Dosage: 100 MILLIGRAM, SINGLE (NO DILUTION)
     Dates: start: 20200116, end: 20200116

REACTIONS (3)
  - Respiratory arrest [Fatal]
  - Cardiac arrest [Fatal]
  - Seizure [Fatal]

NARRATIVE: CASE EVENT DATE: 20200205
